FAERS Safety Report 11097665 (Version 2)
Quarter: 2015Q2

REPORT INFORMATION
  Report Type: Spontaneous
  Country: EE (occurrence: EE)
  Receive Date: 20150507
  Receipt Date: 20150605
  Transmission Date: 20150821
  Serious: Yes (Life-Threatening, Hospitalization)
  Sender: FDA-Public Use
  Company Number: EE-ACTAVIS-2015-09034

PATIENT
  Age: 42 Year
  Sex: Female
  Weight: 160 kg

DRUGS (11)
  1. DEXAMETHASONE                      /00016002/ [Concomitant]
     Active Substance: DEXAMETHASONE SODIUM PHOSPHATE
     Indication: PREMEDICATION
     Dosage: 8 MG 30 MIN BEFORE CHEMOTHERAPY
     Route: 048
  2. ENDOXAN                            /00021101/ [Suspect]
     Active Substance: CYCLOPHOSPHAMIDE
     Indication: ADJUVANT THERAPY
     Dosage: 733.26 MG, DAILY
     Route: 042
     Dates: start: 20141211, end: 20150326
  3. ADRIBLASTIN [Concomitant]
     Active Substance: DOXORUBICIN HYDROCHLORIDE
     Indication: PRODUCT USED FOR UNKNOWN INDICATION
     Dosage: 50MG/2M IN 100 ML NACL 0,9%
     Route: 065
  4. CLEMASTINE [Concomitant]
     Active Substance: CLEMASTINE
     Indication: PREMEDICATION
     Dosage: 2 MG, 15 MIN BEFORE CHEMOTHERAPY
     Route: 042
  5. DOXORUBICIN ACTAVIS [Suspect]
     Active Substance: DOXORUBICIN
     Indication: ADJUVANT THERAPY
     Dosage: 73.39 MG, DAILY
     Route: 042
     Dates: start: 20141211, end: 20150326
  6. DEXAMETHASONE                      /00016002/ [Concomitant]
     Active Substance: DEXAMETHASONE SODIUM PHOSPHATE
     Dosage: 16 MG INFUSION
     Route: 042
  7. GRANISETRON [Concomitant]
     Active Substance: GRANISETRON
     Indication: PREMEDICATION
     Dosage: 3 MG, 15 MIN INFUSION
     Route: 042
  8. CAMITOTIC [Suspect]
     Active Substance: DOCETAXEL
     Indication: ADJUVANT THERAPY
     Dosage: 109.99 MG, DAILY
     Route: 042
     Dates: start: 20141211, end: 20150326
  9. NEULASTA [Concomitant]
     Active Substance: PEGFILGRASTIM
     Indication: PROPHYLAXIS
     Dosage: UNK, UNKNOWN
     Route: 065
     Dates: start: 20150327, end: 20150405
  10. DEXAMETHASONE                      /00016002/ [Concomitant]
     Active Substance: DEXAMETHASONE SODIUM PHOSPHATE
     Dosage: 8 MG, NIGHT BEFORE CHEMOTHERAPY
     Route: 048
  11. RANITIDINE [Concomitant]
     Active Substance: RANITIDINE\RANITIDINE HYDROCHLORIDE
     Indication: PREMEDICATION
     Dosage: 50 MG, 15 MIN BEFORE CHEMOTHERAPY
     Route: 042

REACTIONS (7)
  - Skin ulcer [Unknown]
  - Skin disorder [Not Recovered/Not Resolved]
  - Diarrhoea [Recovered/Resolved]
  - Burning sensation [Unknown]
  - Mucosal inflammation [Recovered/Resolved]
  - Nail disorder [Not Recovered/Not Resolved]
  - Pigmentation disorder [Unknown]

NARRATIVE: CASE EVENT DATE: 20141216
